FAERS Safety Report 5476248-4 (Version None)
Quarter: 2007Q4

REPORT INFORMATION
  Report Type: 
  Country: None (occurrence: None)
  Receive Date: 20071003
  Receipt Date: 20070921
  Transmission Date: 20080405
  Serious: Yes (Life-Threatening)
  Sender: FDA-Public Use
  Company Number: JP-BOEHRINGER INGELHEIM PHARMACEUTICALS, INC.-2007-BP-01616NB

PATIENT
  Sex: Male

DRUGS (4)
  1. BI-SIFROL TABLETS [Suspect]
     Indication: PARKINSON'S DISEASE
     Route: 048
     Dates: start: 20050401
  2. CABERGOLINE [Concomitant]
     Indication: PARKINSON'S DISEASE
     Route: 048
     Dates: start: 20000216
  3. ARTANE [Concomitant]
     Indication: PARKINSON'S DISEASE
     Route: 048
     Dates: start: 20000216
  4. KAMAG [Concomitant]
     Indication: CONSTIPATION
     Route: 048
     Dates: start: 20050729, end: 20050805

REACTIONS (2)
  - ROAD TRAFFIC ACCIDENT [None]
  - SOMNOLENCE [None]
